FAERS Safety Report 10017439 (Version 2)
Quarter: 2014Q2

REPORT INFORMATION
  Report Type: Spontaneous
  Country: US (occurrence: US)
  Receive Date: 20140318
  Receipt Date: 20140424
  Transmission Date: 20141212
  Serious: No
  Sender: FDA-Public Use
  Company Number: US-PFIZER INC-2014073789

PATIENT
  Sex: Female

DRUGS (3)
  1. ADVIL [Suspect]
     Indication: BACK PAIN
     Dosage: UNK
  2. ADVIL [Suspect]
     Indication: SPINAL COLUMN STENOSIS
  3. ADVIL [Suspect]
     Indication: SCOLIOSIS

REACTIONS (2)
  - Off label use [Unknown]
  - Chromaturia [Unknown]
